FAERS Safety Report 9433763 (Version 2)
Quarter: 2013Q4

REPORT INFORMATION
  Report Type: Report from Study
  Country: US (occurrence: US)
  Receive Date: 20130731
  Receipt Date: 20131230
  Transmission Date: 20140711
  Serious: No
  Sender: FDA-Public Use
  Company Number: PHEH2013US015548

PATIENT
  Sex: Female

DRUGS (8)
  1. TASIGNA [Suspect]
     Indication: CHRONIC MYELOID LEUKAEMIA
     Route: 048
     Dates: start: 201008
  2. TASIGNA [Interacting]
     Dosage: 300 MG, BID
     Route: 048
     Dates: start: 20130716
  3. ANTIBIOTICS [Interacting]
  4. CENTRUM [Concomitant]
  5. NORVASC [Concomitant]
     Dosage: UNK
  6. CO ENZYME Q10 [Concomitant]
     Dosage: UNK
  7. VIT B COMPLEX [Concomitant]
  8. VIT C [Concomitant]

REACTIONS (2)
  - Drug interaction [Unknown]
  - Bronchitis [Unknown]
